FAERS Safety Report 7158927-6 (Version None)
Quarter: 2010Q4

REPORT INFORMATION
  Report Type: 
  Country: None (occurrence: None)
  Receive Date: 20101214
  Receipt Date: 20101204
  Transmission Date: 20110411
  Serious: Yes (Other)
  Sender: FDA-Public Use
  Company Number: RB-016595-2010

PATIENT
  Sex: Male

DRUGS (1)
  1. DELSYM [Suspect]
     Dosage: 12 TEASPOONS IN 12 HOURS
     Route: 048
     Dates: start: 20101203

REACTIONS (3)
  - ACCIDENTAL OVERDOSE [None]
  - EUPHORIC MOOD [None]
  - MYDRIASIS [None]
